FAERS Safety Report 8289997-X (Version None)
Quarter: 2012Q2

REPORT INFORMATION
  Report Type: 
  Country: None (occurrence: None)
  Receive Date: 20120417
  Receipt Date: 20120411
  Transmission Date: 20120825
  Serious: No
  Sender: FDA-Public Use
  Company Number: US-PFIZER INC-2012090730

PATIENT
  Sex: Male

DRUGS (2)
  1. ATORVASTATIN CALCIUM [Suspect]
     Dosage: UNK
  2. LIPITOR [Concomitant]
     Dosage: UNK

REACTIONS (3)
  - PRURITUS [None]
  - BLISTER [None]
  - ERYTHEMA [None]
